FAERS Safety Report 16570414 (Version 1)
Quarter: 2019Q3

REPORT INFORMATION
  Report Type: Report from Study
  Country: KR (occurrence: KR)
  Receive Date: 20190715
  Receipt Date: 20190715
  Transmission Date: 20191004
  Serious: Yes (Death, Other)
  Sender: FDA-Public Use
  Company Number: KR-SUN PHARMACEUTICAL INDUSTRIES LTD-2019RR-213822

PATIENT
  Age: 68 Year
  Sex: Male

DRUGS (3)
  1. GEMCITABINE. [Suspect]
     Active Substance: GEMCITABINE
     Indication: TRANSITIONAL CELL CARCINOMA
     Dosage: FOUR CYCLES
     Route: 065
  2. PACLITAXEL. [Suspect]
     Active Substance: PACLITAXEL
     Indication: TRANSITIONAL CELL CARCINOMA
     Dosage: SIX CYCLES
     Route: 065
  3. CARBOPLATIN. [Suspect]
     Active Substance: CARBOPLATIN
     Indication: TRANSITIONAL CELL CARCINOMA
     Dosage: FOUR CYCLES
     Route: 065

REACTIONS (1)
  - Disease progression [Fatal]
